FAERS Safety Report 10695251 (Version 6)
Quarter: 2015Q3

REPORT INFORMATION
  Report Type: Report from Study
  Country: US (occurrence: US)
  Receive Date: 20150107
  Receipt Date: 20150707
  Transmission Date: 20151125
  Serious: Yes (Death, Hospitalization)
  Sender: FDA-Public Use
  Company Number: US-SA-2014SA030525

PATIENT
  Age: 49 Year
  Sex: Male

DRUGS (11)
  1. OXALIPLATIN. [Suspect]
     Active Substance: OXALIPLATIN
     Indication: COLON CANCER
     Dosage: FORM LIQUID ,FREQUENCY: 1 IN 2 WK
     Route: 042
     Dates: start: 20140129, end: 20141022
  2. BEVACIZUMAB [Suspect]
     Active Substance: BEVACIZUMAB
     Indication: COLON CANCER
     Dosage: FORM: LIQUID?FREQUENCY: EVERY 2 WEEKS
     Route: 042
     Dates: start: 20140109, end: 20140109
  3. CALCIUM FOLINATE [Suspect]
     Active Substance: LEUCOVORIN CALCIUM
     Indication: COLON CANCER
     Dosage: FORM:LIQUID?FREQUENCY:1 IN 2 WEEK
     Route: 042
     Dates: start: 20140129, end: 20141022
  4. OXALIPLATIN. [Suspect]
     Active Substance: OXALIPLATIN
     Indication: COLON CANCER
     Dosage: FORM: LIQUID?FREQUENCY: EVERY 2 WEEKS
     Route: 042
     Dates: start: 20140109, end: 20140109
  5. FLUOROURACIL. [Suspect]
     Active Substance: FLUOROURACIL
     Indication: COLON CANCER
     Dosage: FORM^ LIQUID ,FREQUENCY: 1 IN 2WK
     Route: 042
     Dates: start: 20140129, end: 20141022
  6. BEVACIZUMAB [Suspect]
     Active Substance: BEVACIZUMAB
     Indication: COLON CANCER
     Dosage: FREQUENCY: 1 IN 2 WK ,FORM:LIQUID
     Route: 042
     Dates: start: 20140129, end: 20141022
  7. SIMETHICONE (DIMETHICONE) [Concomitant]
     Active Substance: DIMETHICONE
     Dates: start: 20131028
  8. FLUOROURACIL. [Suspect]
     Active Substance: FLUOROURACIL
     Indication: COLON CANCER
     Dosage: FORM: INFUSION?FREQUENCY: EVERY 2 WEEKS
     Route: 042
     Dates: start: 20140109, end: 20140109
  9. IRINOTECAN HYDROCHLORIDE. [Suspect]
     Active Substance: IRINOTECAN HYDROCHLORIDE
     Indication: COLON CANCER
     Dosage: FORM: LIQUID,FREQUENCY:  1IN 2 WK
     Route: 042
     Dates: start: 20140129, end: 20141022
  10. CALCIUM FOLINATE [Suspect]
     Active Substance: LEUCOVORIN CALCIUM
     Indication: COLON CANCER
     Dosage: FORM:LIQUID?FREQUENCY:1 IN 2 WEEK
     Route: 042
     Dates: start: 20140109, end: 20140109
  11. IRINOTECAN HYDROCHLORIDE. [Suspect]
     Active Substance: IRINOTECAN HYDROCHLORIDE
     Indication: COLON CANCER
     Dosage: FORM: LIQUID?FREQUENCY: EVERY 2 WEEK
     Route: 042
     Dates: start: 20140109, end: 20140109

REACTIONS (3)
  - Death [Fatal]
  - Febrile neutropenia [Recovered/Resolved]
  - Constipation [Recovered/Resolved]

NARRATIVE: CASE EVENT DATE: 20140118
